FAERS Safety Report 9650446 (Version 4)
Quarter: 2014Q1

REPORT INFORMATION
  Report Type: Spontaneous
  Country: US (occurrence: US)
  Receive Date: 20131028
  Receipt Date: 20140121
  Transmission Date: 20141002
  Serious: Yes (Other)
  Sender: FDA-Public Use
  Company Number: US-009507513-1310USA010355

PATIENT
  Age: 54 Year
  Sex: Male

DRUGS (3)
  1. VICTRELIS [Suspect]
     Indication: CHRONIC HEPATITIS C
     Dosage: UNK
     Route: 048
     Dates: start: 20130913, end: 20131030
  2. PEGASYS [Suspect]
     Indication: CHRONIC HEPATITIS C
     Dosage: 180 MICROGRAM, QW
     Route: 058
     Dates: start: 20130809, end: 20131030
  3. COPEGUS [Suspect]
     Indication: CHRONIC HEPATITIS C
     Dosage: 1200 MG, QD, DIVIDED DOSES
     Route: 048
     Dates: start: 20130809, end: 20131030

REACTIONS (11)
  - Memory impairment [Unknown]
  - Headache [Recovering/Resolving]
  - Dysgeusia [Recovering/Resolving]
  - Decreased appetite [Recovering/Resolving]
  - Weight decreased [Not Recovered/Not Resolved]
  - Arthritis [Unknown]
  - Abdominal discomfort [Unknown]
  - Hepatic cirrhosis [Unknown]
  - Epistaxis [Unknown]
  - Haemoptysis [Unknown]
  - Arthralgia [Unknown]
